FAERS Safety Report 12582968 (Version 8)
Quarter: 2017Q1

REPORT INFORMATION
  Report Type: Report from Study
  Country: US (occurrence: US)
  Receive Date: 20160722
  Receipt Date: 20170308
  Transmission Date: 20170428
  Serious: Yes (Hospitalization, Other)
  Sender: FDA-Public Use
  Company Number: US-BAYER-2016-137702

PATIENT
  Age: 57 Year
  Sex: Female
  Weight: 81.63 kg

DRUGS (8)
  1. ADEMPAS [Suspect]
     Active Substance: RIOCIGUAT
     Indication: PULMONARY ARTERIAL HYPERTENSION
     Dosage: 1 MG, TID
     Route: 048
  2. ADEMPAS [Suspect]
     Active Substance: RIOCIGUAT
     Indication: PULMONARY ARTERIAL HYPERTENSION
     Dosage: 2.5 MG, TID
     Route: 048
  3. REMODULIN [Concomitant]
     Active Substance: TREPROSTINIL
  4. DILTIAZEM. [Concomitant]
     Active Substance: DILTIAZEM
  5. ADEMPAS [Suspect]
     Active Substance: RIOCIGUAT
     Indication: PULMONARY ARTERIAL HYPERTENSION
     Dosage: 1.5 MG, TID
     Route: 048
  6. ADEMPAS [Suspect]
     Active Substance: RIOCIGUAT
     Indication: PULMONARY ARTERIAL HYPERTENSION
     Dosage: 2.5 MG, TID
     Route: 048
  7. ADEMPAS [Suspect]
     Active Substance: RIOCIGUAT
     Indication: PULMONARY ARTERIAL HYPERTENSION
     Dosage: UNK
     Dates: start: 20160510
  8. OPSUMIT [Concomitant]
     Active Substance: MACITENTAN

REACTIONS (29)
  - Lymphadenopathy [Unknown]
  - Urticaria [None]
  - Loss of consciousness [None]
  - Nasal congestion [None]
  - Dehydration [None]
  - Productive cough [Unknown]
  - Rhinorrhoea [Unknown]
  - Diarrhoea [Unknown]
  - Dizziness [None]
  - Pneumonia [None]
  - Hypokalaemia [None]
  - Pyrexia [None]
  - Infusion site pain [Unknown]
  - Infusion site swelling [None]
  - Muscle spasms [None]
  - Dyspnoea [None]
  - Fatigue [Unknown]
  - Neuropathy peripheral [Unknown]
  - Syncope [None]
  - Lower respiratory tract infection [Unknown]
  - Chills [None]
  - Lymphadenopathy [None]
  - Cough [None]
  - Cough [Unknown]
  - Infusion site urticaria [Unknown]
  - Increased tendency to bruise [Unknown]
  - Erythema [Unknown]
  - Asthenia [None]
  - Chest discomfort [Unknown]

NARRATIVE: CASE EVENT DATE: 20160615
